FAERS Safety Report 14352710 (Version 2)
Quarter: 2019Q2

REPORT INFORMATION
  Report Type: Spontaneous
  Country: US (occurrence: US)
  Receive Date: 20180104
  Receipt Date: 20190415
  Transmission Date: 20190711
  Serious: Yes (Hospitalization)
  Sender: FDA-Public Use
  Company Number: US-PFIZER INC-2017549671

PATIENT
  Age: 71 Year
  Sex: Female
  Weight: 58 kg

DRUGS (3)
  1. INLYTA [Suspect]
     Active Substance: AXITINIB
     Dosage: 5 MG, 2X/DAY (ONCE IN THE MORNING AND ONCE IN THE EVENING)
     Dates: start: 201711, end: 201711
  2. OPDIVO [Concomitant]
     Active Substance: NIVOLUMAB
     Indication: IMMUNOMODULATORY THERAPY
     Dosage: UNK (INFUSION EVERY TWO WEEKS)
     Dates: start: 201607, end: 201712
  3. INLYTA [Suspect]
     Active Substance: AXITINIB
     Indication: RENAL CANCER METASTATIC
     Dosage: 10 MG, 2X/DAY
     Dates: start: 201710, end: 20171030

REACTIONS (4)
  - Gait disturbance [Recovered/Resolved]
  - Dysphonia [Recovered/Resolved]
  - Tinnitus [Recovered/Resolved]
  - Stomatitis [Recovered/Resolved]

NARRATIVE: CASE EVENT DATE: 201710
